FAERS Safety Report 6406332-X (Version None)
Quarter: 2009Q4

REPORT INFORMATION
  Report Type: 
  Country: None (occurrence: None)
  Receive Date: 20091014
  Receipt Date: 20091002
  Transmission Date: 20100525
  Serious: Yes (Other)
  Sender: FDA-Public Use
  Company Number: 2009SP029122

PATIENT
  Age: 79 Year
  Sex: Female

DRUGS (2)
  1. CLARITIN [Suspect]
     Indication: EYE PRURITUS
     Dosage: 10 MG; ONCE; PO
     Route: 048
     Dates: start: 20091001
  2. CLARITIN [Suspect]
     Indication: RHINORRHOEA
     Dosage: 10 MG; ONCE; PO
     Route: 048
     Dates: start: 20091001

REACTIONS (3)
  - DYSPNOEA [None]
  - PALPITATIONS [None]
  - TREMOR [None]
